FAERS Safety Report 8095093-7 (Version None)
Quarter: 2012Q1

REPORT INFORMATION
  Report Type: 
  Country: None (occurrence: None)
  Receive Date: 20120131
  Receipt Date: 20120128
  Transmission Date: 20120608
  Serious: Yes (Other)
  Sender: FDA-Public Use
  Company Number: NL-AMGEN-NLDSP2012005805

PATIENT
  Age: 52 Year
  Sex: Female

DRUGS (5)
  1. OMEPRAZOLE [Concomitant]
  2. CONTRAST MEDIA [Concomitant]
  3. PRIMPERAN TAB [Concomitant]
  4. ANTINEOPLASTIC AGENTS [Concomitant]
     Indication: BREAST CANCER
  5. NEULASTA [Suspect]
     Indication: CHEMOTHERAPY
     Dosage: 6 MG, UNK
     Dates: start: 20060101

REACTIONS (1)
  - MUSCULOSKELETAL DISCOMFORT [None]
